FAERS Safety Report 25881490 (Version 1)
Quarter: 2025Q4

REPORT INFORMATION
  Report Type: Spontaneous
  Country: EU (occurrence: EU)
  Receive Date: 20251005
  Receipt Date: 20251005
  Transmission Date: 20260118
  Serious: Yes (Other)
  Sender: AUROBINDO
  Company Number: EU-AFSSAPS-NC2025001494

PATIENT
  Age: 7 Year
  Sex: Male
  Weight: 27.6 kg

DRUGS (3)
  1. AZITHROMYCIN [Suspect]
     Active Substance: AZITHROMYCIN
     Indication: Cystic fibrosis
     Dosage: UNK (250 MG X 3/WEEK, STOP IN JULY AND AUGUST 2024, THEN RESUME IN SEPTEMBER 2024)
     Route: 048
     Dates: start: 20230615
  2. ELEXACAFTOR\IVACAFTOR\TEZACAFTOR [Suspect]
     Active Substance: ELEXACAFTOR\IVACAFTOR\TEZACAFTOR
     Indication: Cystic fibrosis
     Dosage: 2 DOSAGE FORM, ONCE A DAY
     Route: 048
     Dates: start: 20231015
  3. KALYDECO [Suspect]
     Active Substance: IVACAFTOR
     Indication: Cystic fibrosis
     Dosage: 75 MILLIGRAM, ONCE A DAY
     Route: 048
     Dates: start: 20231015

REACTIONS (2)
  - Neutropenia [Not Recovered/Not Resolved]
  - Neuropsychological symptoms [Not Recovered/Not Resolved]

NARRATIVE: CASE EVENT DATE: 20231127
